FAERS Safety Report 4543344-5 (Version None)
Quarter: 2005Q1

REPORT INFORMATION
  Report Type: 
  Country: None (occurrence: None)
  Receive Date: 20050103
  Receipt Date: 20040210
  Transmission Date: 20050727
  Serious: Yes (Other)
  Sender: FDA-Public Use
  Company Number: DE-ROCHE-358624

PATIENT
  Age: 50 Year
  Sex: Female
  Weight: 82 kg

DRUGS (3)
  1. ROFERON-A [Suspect]
     Route: 058
     Dates: start: 20031201
  2. CITALOPRAM [Concomitant]
     Indication: DEPRESSION
     Route: 048
     Dates: end: 20030715
  3. PRESOMEN COMPOSITUM [Concomitant]
     Route: 048

REACTIONS (7)
  - ATROPHY [None]
  - BLEEDING TIME PROLONGED [None]
  - BRAIN OEDEMA [None]
  - CEREBRAL HAEMATOMA [None]
  - CEREBRAL HAEMORRHAGE [None]
  - FOOT FRACTURE [None]
  - HAEMORRHAGIC DIATHESIS [None]
